FAERS Safety Report 20333978 (Version 1)
Quarter: 2022Q1

REPORT INFORMATION
  Report Type: Report from Study
  Country: CA (occurrence: CA)
  Receive Date: 20220113
  Receipt Date: 20220113
  Transmission Date: 20220423
  Serious: Yes (Other)
  Sender: FDA-Public Use
  Company Number: CA-Taiho Oncology Inc-EU-2021-02623

PATIENT
  Age: 76 Year
  Sex: Male

DRUGS (1)
  1. LONSURF [Suspect]
     Active Substance: TIPIRACIL HYDROCHLORIDE\TRIFLURIDINE
     Indication: Colorectal cancer metastatic
     Dosage: DOSE, FREQUENCY AND CURRENT CYCLE UNKNOWN
     Route: 048
     Dates: start: 20210708

REACTIONS (6)
  - Transfusion [Unknown]
  - Suspected COVID-19 [Unknown]
  - Dyspepsia [Unknown]
  - White blood cell count decreased [Unknown]
  - Product distribution issue [Unknown]
  - Therapy interrupted [Unknown]

NARRATIVE: CASE EVENT DATE: 20210101
